FAERS Safety Report 5524946-6 (Version None)
Quarter: 2007Q4

REPORT INFORMATION
  Report Type: 
  Country: None (occurrence: None)
  Receive Date: 20071125
  Receipt Date: 20071115
  Transmission Date: 20080405
  Serious: Yes (Hospitalization, Other)
  Sender: FDA-Public Use
  Company Number: PHBS2007BR19334

PATIENT
  Age: 40 Year
  Sex: Male
  Weight: 82 kg

DRUGS (5)
  1. GLEEVEC [Suspect]
     Indication: MYELOID LEUKAEMIA
     Route: 048
     Dates: start: 20060501
  2. GLEEVEC [Suspect]
     Dosage: 200MG
     Route: 048
  3. ENALAPRIL MALEATE [Concomitant]
     Indication: HYPERTENSION
     Dosage: 10 MG, BID
     Route: 048
     Dates: start: 20040101
  4. CHLORTHALIDONE [Concomitant]
     Indication: HYPERTENSION
     Dosage: 25 MG, QD
  5. AMLODIPINE [Concomitant]
     Indication: HYPERTENSION
     Dosage: UNK, QD
     Route: 048
     Dates: start: 20040101

REACTIONS (12)
  - AMNESIA [None]
  - CHROMOSOME ANALYSIS ABNORMAL [None]
  - DELIRIUM [None]
  - FATIGUE [None]
  - GAIT DISTURBANCE [None]
  - GASTROENTERITIS ROTAVIRUS [None]
  - HALLUCINATION [None]
  - NAUSEA [None]
  - PYREXIA [None]
  - SPEECH DISORDER [None]
  - THROMBOCYTOPENIA [None]
  - VOMITING [None]
